FAERS Safety Report 24771931 (Version 1)
Quarter: 2024Q4

REPORT INFORMATION
  Report Type: Spontaneous
  Country: US (occurrence: US)
  Receive Date: 20241224
  Receipt Date: 20241224
  Transmission Date: 20250115
  Serious: No
  Sender: ABBVIE
  Company Number: US-ABBVIE-6059847

PATIENT

DRUGS (2)
  1. REFRESH RELIEVA PF XTRA [Suspect]
     Active Substance: CARBOXYMETHYLCELLULOSE SODIUM\GLYCERIN
     Indication: Product used for unknown indication
     Route: 047
  2. REFRESH RELIEVA PF XTRA [Suspect]
     Active Substance: CARBOXYMETHYLCELLULOSE SODIUM\GLYCERIN
     Route: 047

REACTIONS (3)
  - Pain [Unknown]
  - Irritability [Unknown]
  - Erythema [Unknown]
